FAERS Safety Report 17814992 (Version 1)
Quarter: 2020Q2

REPORT INFORMATION
  Report Type: Spontaneous
  Country: AU (occurrence: AU)
  Receive Date: 20200522
  Receipt Date: 20200522
  Transmission Date: 20200714
  Serious: Yes (Other)
  Sender: FDA-Public Use
  Company Number: AU-TAKEDA-2020TUS022778

PATIENT
  Sex: Female

DRUGS (9)
  1. ENTYVIO [Suspect]
     Active Substance: VEDOLIZUMAB
     Dosage: UNK
     Route: 065
     Dates: start: 201911
  2. ENTYVIO [Suspect]
     Active Substance: VEDOLIZUMAB
     Indication: COLITIS ULCERATIVE
     Dosage: UNK
     Route: 065
     Dates: start: 201711
  3. MESALAZINE [Suspect]
     Active Substance: MESALAMINE
     Indication: COLITIS ULCERATIVE
     Dosage: UNK
     Route: 065
  4. PREDSOL                            /00016201/ [Suspect]
     Active Substance: PREDNISOLONE
     Indication: COLITIS ULCERATIVE
     Dosage: UNK
     Route: 065
  5. PREDNISOLONE. [Suspect]
     Active Substance: PREDNISOLONE
     Indication: COLITIS ULCERATIVE
     Dosage: UNK
     Route: 048
  6. AZATHIOPRINE. [Suspect]
     Active Substance: AZATHIOPRINE
     Indication: COLITIS ULCERATIVE
     Dosage: UNK
     Route: 065
     Dates: start: 201703
  7. THIOGUANINE [Suspect]
     Active Substance: THIOGUANINE
     Indication: COLITIS ULCERATIVE
     Dosage: UNK
     Route: 065
  8. CORTIMENT                          /00028601/ [Suspect]
     Active Substance: HYDROCORTISONE
     Indication: COLITIS ULCERATIVE
     Dosage: 9 MILLIGRAM, QD
     Route: 065
  9. INFLIXIMAB [Suspect]
     Active Substance: INFLIXIMAB
     Indication: COLITIS ULCERATIVE
     Dosage: UNK
     Route: 065
     Dates: start: 202003

REACTIONS (3)
  - Immune thrombocytopenia [Unknown]
  - Colitis ulcerative [Not Recovered/Not Resolved]
  - Therapy non-responder [Unknown]
